FAERS Safety Report 7385370-7 (Version None)
Quarter: 2011Q1

REPORT INFORMATION
  Report Type: 
  Country: None (occurrence: None)
  Receive Date: 20110330
  Receipt Date: 20101117
  Transmission Date: 20110831
  Serious: No
  Sender: FDA-Public Use
  Company Number: US-MYLANLABS-2010S1021278

PATIENT
  Age: 57 Year
  Sex: Male

DRUGS (7)
  1. SYNTHROID [Concomitant]
  2. CRESTOR [Concomitant]
  3. EMSAM [Suspect]
     Indication: DEPRESSION
     Dosage: CHANGED QW
     Route: 062
     Dates: start: 20101116
  4. KLONOPIN [Concomitant]
  5. AMBIEN [Concomitant]
  6. LUNESTA [Concomitant]
  7. LITHIUM [Concomitant]

REACTIONS (1)
  - APPLICATION SITE ERYTHEMA [None]
